FAERS Safety Report 7781557-X (Version None)
Quarter: 2011Q3

REPORT INFORMATION
  Report Type: 
  Country: None (occurrence: None)
  Receive Date: 20110923
  Receipt Date: 20110908
  Transmission Date: 20111222
  Serious: Yes (Other)
  Sender: FDA-Public Use
  Company Number: 2011AP002011

PATIENT
  Age: 51 Year
  Sex: Female

DRUGS (4)
  1. BISOPROLOL FUMARATE [Concomitant]
  2. ASPIRIN [Concomitant]
  3. PERINDOPRIL ERBUMINE [Concomitant]
  4. SERTRALINE HYDROCHLORIDE [Suspect]
     Indication: DEPRESSION
     Dosage: 100 MG; PO
     Route: 048
     Dates: start: 20110724, end: 20110830

REACTIONS (2)
  - AKATHISIA [None]
  - RESTLESSNESS [None]
